FAERS Safety Report 9593194 (Version 1)
Quarter: 2013Q3

REPORT INFORMATION
  Report Type: Spontaneous
  Country: US (occurrence: None)
  Receive Date: 20130930
  Receipt Date: 20130930
  Transmission Date: 20140515
  Serious: Yes (Other)
  Sender: FDA-Public Use
  Company Number: 1000046717

PATIENT
  Age: 88 Year
  Sex: Male

DRUGS (4)
  1. LINZESS (LINACLOTIDE) (290 MICROGRAM, CAPSULES) [Suspect]
     Indication: CONSTIPATION
     Dosage: 290 MCG (290 MCG, 1 IN 1 D), ORAL
     Route: 048
     Dates: start: 201306
  2. AMLODIPINE (AMLODIPINE) (AMLODIPINE) [Concomitant]
  3. AMITRIPTYLINE (AMITRIPTYLINE) (AMITRIPTYLINE) [Concomitant]
  4. SANCTURA (TROSPIUM CHLORIDE) (TROSPIUM CHLORIDE) [Concomitant]

REACTIONS (2)
  - Drug ineffective [None]
  - Faeces discoloured [None]
